FAERS Safety Report 6985031-X (Version None)
Quarter: 2010Q3

REPORT INFORMATION
  Report Type: 
  Country: None (occurrence: None)
  Receive Date: 20100915
  Receipt Date: 20100903
  Transmission Date: 20110219
  Serious: Yes (Hospitalization)
  Sender: FDA-Public Use
  Company Number: PHHY2010JP34742

PATIENT
  Age: 90 Year
  Sex: Female

DRUGS (7)
  1. DIOVAN [Suspect]
     Indication: HYPERTENSION
     Dosage: 80 MG DAILY
     Route: 048
     Dates: end: 20100406
  2. DOPASOL [Concomitant]
     Dosage: 400 MG
     Route: 048
     Dates: end: 20100404
  3. GRAMALIL [Concomitant]
     Dosage: 50 MG
     Route: 048
     Dates: end: 20100404
  4. ASPIRIN [Concomitant]
     Dosage: 100 MG
     Route: 048
     Dates: end: 20100404
  5. MAGNESIUM OXIDE [Concomitant]
     Dosage: 670 MG
     Route: 048
     Dates: end: 20100404
  6. SILECE [Concomitant]
     Dosage: 1 MG
     Route: 048
     Dates: end: 20100404
  7. PARIET [Concomitant]
     Dosage: 10 MG
     Dates: end: 20100404

REACTIONS (3)
  - ALTERED STATE OF CONSCIOUSNESS [None]
  - DIZZINESS [None]
  - HYPOGLYCAEMIA [None]
